FAERS Safety Report 7982695-9 (Version None)
Quarter: 2011Q4

REPORT INFORMATION
  Report Type: 
  Country: None (occurrence: None)
  Receive Date: 20111215
  Receipt Date: 20111208
  Transmission Date: 20120403
  Serious: Yes (Death, Other)
  Sender: FDA-Public Use
  Company Number: US-SANOFI-AVENTIS-2011SA066385

PATIENT
  Sex: Female

DRUGS (1)
  1. ELOXATIN [Suspect]
     Route: 041

REACTIONS (2)
  - DEATH [None]
  - LIVER DISORDER [None]
